FAERS Safety Report 5403748-5 (Version None)
Quarter: 2007Q3

REPORT INFORMATION
  Report Type: 
  Country: None (occurrence: None)
  Receive Date: 20070713
  Receipt Date: 20070518
  Transmission Date: 20080115
  Serious: Yes (Other)
  Sender: FDA-Public Use
  Company Number: 2007029209

PATIENT
  Age: 23 Year
  Sex: Female
  Weight: 56.7 kg

DRUGS (2)
  1. DEPO-SUBQ PROVERA 104 [Suspect]
     Dosage: SEE IMAGE
     Route: 058
     Dates: start: 20061004, end: 20061004
  2. DEPO-SUBQ PROVERA 104 [Suspect]
     Dosage: SEE IMAGE
     Route: 058
     Dates: start: 20061227, end: 20061227

REACTIONS (1)
  - INJECTION SITE INDURATION [None]
